FAERS Safety Report 10745241 (Version 1)
Quarter: 2015Q1

REPORT INFORMATION
  Report Type: Spontaneous
  Country: MX (occurrence: MX)
  Receive Date: 20150128
  Receipt Date: 20150128
  Transmission Date: 20150721
  Serious: Yes (Death, Hospitalization)
  Sender: FDA-Public Use
  Company Number: MX-UCBSA-2015001553

PATIENT
  Age: 79 Year
  Sex: Male

DRUGS (2)
  1. JANUMET [Concomitant]
     Active Substance: METFORMIN HYDROCHLORIDE\SITAGLIPTIN PHOSPHATE
     Indication: PRODUCT USED FOR UNKNOWN INDICATION
     Dosage: 1 DF, ONCE DAILY (QD); 1 TABLET DAILY
  2. NUBRENZA [Suspect]
     Active Substance: ROTIGOTINE
     Indication: PARKINSON^S DISEASE
     Dosage: 8 MG, ONCE DAILY (QD)
     Route: 003
     Dates: start: 20140731, end: 201411

REACTIONS (2)
  - Pneumonia [Fatal]
  - Aspiration bronchial [Recovered/Resolved]

NARRATIVE: CASE EVENT DATE: 201411
